FAERS Safety Report 8988900 (Version 1)
Quarter: 2012Q4

REPORT INFORMATION
  Report Type: 
  Country: AU (occurrence: AU)
  Receive Date: 20121227
  Receipt Date: 20121227
  Transmission Date: 20130627
  Serious: Yes (Other)
  Sender: FDA-Public Use
  Company Number: AU-ELI_LILLY_AND_COMPANY-AU201212006258

PATIENT
  Age: 57 Year
  Sex: Male

DRUGS (3)
  1. BYETTA [Suspect]
     Indication: TYPE 2 DIABETES MELLITUS
     Dosage: 5 ug, UNK
     Dates: start: 20121124
  2. DIABEX [Concomitant]
     Dosage: 3000 mg, UNK
  3. AMARYL [Concomitant]
     Dosage: 4 mg, each morning

REACTIONS (2)
  - Fluid retention [Not Recovered/Not Resolved]
  - Constipation [Not Recovered/Not Resolved]
